FAERS Safety Report 23981880 (Version 1)
Quarter: 2024Q2

REPORT INFORMATION
  Report Type: Report from Study
  Country: US (occurrence: US)
  Receive Date: 20240617
  Receipt Date: 20240617
  Transmission Date: 20240715
  Serious: Yes (Other)
  Sender: FDA-Public Use
  Company Number: US-ABBVIE-5800096

PATIENT
  Sex: Female

DRUGS (2)
  1. RITONAVIR [Suspect]
     Active Substance: RITONAVIR
     Indication: Product used for unknown indication
     Route: 048
  2. LAMIVUDINE AND ZIDOVUDINE [Suspect]
     Active Substance: LAMIVUDINE\ZIDOVUDINE
     Indication: Product used for unknown indication
     Route: 065

REACTIONS (2)
  - Abortion induced [Unknown]
  - Maternal exposure during pregnancy [Unknown]
